FAERS Safety Report 11803244 (Version 1)
Quarter: 2015Q4

REPORT INFORMATION
  Report Type: Spontaneous
  Country: US (occurrence: US)
  Receive Date: 20151204
  Receipt Date: 20151204
  Transmission Date: 20160305
  Serious: No
  Sender: FDA-Public Use
  Company Number: US-BAYER-2015-475711

PATIENT
  Age: 62 Year
  Sex: Female

DRUGS (1)
  1. FINACEA [Suspect]
     Active Substance: AZELAIC ACID
     Indication: SKIN HYPERPIGMENTATION
     Dosage: 1 DF, OM
     Route: 061
     Dates: start: 20151112

REACTIONS (3)
  - Skin irritation [Unknown]
  - Burning sensation [Unknown]
  - Product use issue [None]

NARRATIVE: CASE EVENT DATE: 20151112
